FAERS Safety Report 9937383 (Version 1)
Quarter: 2014Q1

REPORT INFORMATION
  Report Type: Report from Study
  Country: DE (occurrence: DE)
  Receive Date: 20140303
  Receipt Date: 20140303
  Transmission Date: 20141002
  Serious: Yes (Hospitalization)
  Sender: FDA-Public Use
  Company Number: DE-ROCHE-1054577

PATIENT
  Age: 57 Year
  Sex: Male
  Weight: 92 kg

DRUGS (7)
  1. RITUXIMAB [Suspect]
     Indication: RHEUMATOID ARTHRITIS
     Dosage: LAST DOSE PRIOR TO SAE ON DEC/2011
     Route: 042
     Dates: start: 20111122, end: 201112
  2. METHOTREXATE [Concomitant]
     Indication: RHEUMATOID ARTHRITIS
     Dosage: LAST DOSE PRIOR TO SAE ON DEC/2011
     Route: 058
     Dates: start: 200304, end: 201112
  3. FOLSAN [Concomitant]
     Indication: RHEUMATOID ARTHRITIS
     Dosage: LAST DOSE PRIOR TO SAE ON DEC/2011
     Route: 048
     Dates: end: 201112
  4. VOLTAREN [Concomitant]
     Indication: RHEUMATOID ARTHRITIS
     Dosage: LAST DOSE PRIOR TO SAE ON DEC/2011
     Route: 048
     Dates: end: 201112
  5. METHYLPREDNISOLON [Concomitant]
     Indication: RHEUMATOID ARTHRITIS
     Dosage: LAST DOSE PRIOR TO SAE ON DEC/2011
     Route: 048
     Dates: end: 201112
  6. PANTOZOL (GERMANY) [Concomitant]
     Indication: RHEUMATOID ARTHRITIS
     Route: 048
     Dates: end: 201112
  7. NOVAMINSULFON [Concomitant]
     Indication: RHEUMATOID ARTHRITIS
     Dosage: LAST DOSE PRIOR TO SAE ON DEC/2011
     Route: 048
     Dates: end: 201112

REACTIONS (1)
  - Depression [Recovering/Resolving]
